FAERS Safety Report 7598523-X (Version None)
Quarter: 2011Q3

REPORT INFORMATION
  Report Type: 
  Country: None (occurrence: None)
  Receive Date: 20110708
  Receipt Date: 20110705
  Transmission Date: 20111222
  Serious: Yes (Other)
  Sender: FDA-Public Use
  Company Number: AU-ELI_LILLY_AND_COMPANY-AU201107001139

PATIENT
  Age: 62 Year
  Sex: Male

DRUGS (7)
  1. BYETTA [Suspect]
     Indication: DIABETES MELLITUS
     Dosage: 10 UG, BID
     Route: 058
     Dates: start: 20100101
  2. ATORVASTATIN [Concomitant]
  3. CLOPIDOGREL [Concomitant]
  4. FUROSEMIDE [Concomitant]
  5. ATENOLOL [Concomitant]
  6. METFORMIN HCL [Concomitant]
  7. ASPIRIN [Concomitant]

REACTIONS (3)
  - DRUG INTERACTION [None]
  - INTERNATIONAL NORMALISED RATIO DECREASED [None]
  - ATRIAL FIBRILLATION [None]
